FAERS Safety Report 7394565-8 (Version None)
Quarter: 2011Q2

REPORT INFORMATION
  Report Type: 
  Country: None (occurrence: None)
  Receive Date: 20110405
  Receipt Date: 20091122
  Transmission Date: 20111010
  Serious: Yes (Other)
  Sender: FDA-Public Use
  Company Number: US-BAYER-200940294NA

PATIENT
  Sex: Female
  Weight: 118 kg

DRUGS (11)
  1. TRASYLOL [Suspect]
     Indication: CORONARY ARTERY BYPASS
     Dosage: UNK
     Route: 042
     Dates: start: 20021130
  2. ASPIRIN [Concomitant]
     Dosage: 325 MG, UNK
     Route: 048
  3. VERSED [Concomitant]
     Dosage: UNK
     Route: 042
     Dates: start: 20021130
  4. RAMIPRIL 1A PHARMA GMBH [Concomitant]
     Dosage: 5 MG, UNK
     Route: 048
     Dates: start: 20021127
  5. ANCEF [Concomitant]
     Dosage: 1 G, UNK
     Route: 042
     Dates: start: 20021130
  6. DIGOXIN ALMUS [Concomitant]
     Dosage: 0.25 MG, UNK
     Route: 048
     Dates: start: 20021127
  7. PROTAMINE SULFATE [Concomitant]
     Dosage: UNK
     Route: 042
     Dates: start: 20021130
  8. HEPARIN SODIUM [Concomitant]
     Dosage: 1000-33000UNITS
     Route: 042
     Dates: start: 20021130
  9. LASIX + K [Concomitant]
     Dosage: 40MG/4ML
     Route: 042
     Dates: start: 20021128
  10. TRICOR [Concomitant]
     Dosage: 54 MG, UNK
     Route: 048
     Dates: start: 20021128
  11. AMIODARONE HCL [Concomitant]
     Dosage: 200 MG, UNK
     Route: 048
     Dates: start: 20021126

REACTIONS (13)
  - STRESS [None]
  - INJURY [None]
  - RENAL IMPAIRMENT [None]
  - UNEVALUABLE EVENT [None]
  - MENTAL DISORDER [None]
  - RENAL INJURY [None]
  - PAIN [None]
  - ANHEDONIA [None]
  - EMOTIONAL DISTRESS [None]
  - MULTI-ORGAN FAILURE [None]
  - RENAL FAILURE [None]
  - FEAR [None]
  - ANXIETY [None]
